FAERS Safety Report 19170091 (Version 5)
Quarter: 2024Q3

REPORT INFORMATION
  Report Type: Report from Study
  Country: US (occurrence: US)
  Receive Date: 20210422
  Receipt Date: 20240712
  Transmission Date: 20241017
  Serious: Yes (Life-Threatening, Hospitalization, Other)
  Sender: ABBVIE
  Company Number: US-ABBVIE-21K-163-3871792-00

PATIENT
  Age: 40 Year
  Sex: Male

DRUGS (11)
  1. HUMIRA [Suspect]
     Active Substance: ADALIMUMAB
     Indication: Colitis ulcerative
     Route: 058
     Dates: start: 20170420, end: 20180124
  2. AZATHIOPRINE [Suspect]
     Active Substance: AZATHIOPRINE
     Indication: Colitis ulcerative
     Route: 048
     Dates: start: 2013, end: 201401
  3. AZATHIOPRINE [Suspect]
     Active Substance: AZATHIOPRINE
     Indication: Colitis ulcerative
     Route: 048
     Dates: start: 201401, end: 20170419
  4. AZATHIOPRINE [Suspect]
     Active Substance: AZATHIOPRINE
     Indication: Colitis ulcerative
     Route: 048
     Dates: start: 20180124, end: 20191217
  5. URSODIOL [Concomitant]
     Active Substance: URSODIOL
     Indication: Cholangitis sclerosing
     Route: 048
     Dates: start: 20171117
  6. LIALDA [Concomitant]
     Active Substance: MESALAMINE
     Indication: Colitis ulcerative
     Route: 048
     Dates: start: 201401
  7. VEDOLIZUMAB [Concomitant]
     Active Substance: VEDOLIZUMAB
     Indication: Colitis ulcerative
     Route: 042
     Dates: start: 20180124
  8. OMEPRAZOLE [Concomitant]
     Active Substance: OMEPRAZOLE
     Indication: Gastrooesophageal reflux disease
     Route: 048
     Dates: start: 201801
  9. FUROSEMIDE [Concomitant]
     Active Substance: FUROSEMIDE
     Indication: Oedema
     Route: 048
     Dates: start: 201806
  10. SPIRONOLACTONE [Concomitant]
     Active Substance: SPIRONOLACTONE
     Indication: Oedema
     Route: 048
     Dates: start: 201806
  11. METHIMAZOLE [Concomitant]
     Active Substance: METHIMAZOLE
     Indication: Graves^ disease
     Route: 048
     Dates: start: 201910

REACTIONS (1)
  - Cholangitis sclerosing [Recovered/Resolved]

NARRATIVE: CASE EVENT DATE: 20191215
